FAERS Safety Report 5824300-3 (Version None)
Quarter: 2008Q3

REPORT INFORMATION
  Report Type: 
  Country: None (occurrence: None)
  Receive Date: 20080728
  Receipt Date: 20080718
  Transmission Date: 20090109
  Serious: Yes (Hospitalization)
  Sender: FDA-Public Use
  Company Number: GB-AVENTIS-200815295GDDC

PATIENT
  Age: 69 Year
  Sex: Male

DRUGS (17)
  1. RIFAMPICIN [Suspect]
     Dates: start: 20030501
  2. CLOPIDOGREL [Suspect]
     Route: 048
  3. CLOPIDOGREL [Suspect]
     Route: 048
  4. CLOPIDOGREL [Suspect]
     Route: 048
  5. CLOPIDOGREL [Suspect]
     Route: 048
  6. CLOPIDOGREL [Suspect]
     Route: 048
  7. CLOPIDOGREL [Suspect]
     Route: 048
  8. CLARITHROMYCIN [Suspect]
     Dates: start: 20030501
  9. ETHAMBUTOL HCL [Suspect]
     Dates: start: 20030501
  10. ABCIXIMAB [Concomitant]
     Indication: ANGIOPLASTY
     Route: 042
  11. ABCIXIMAB [Concomitant]
     Route: 042
  12. ABCIXIMAB [Concomitant]
     Route: 042
  13. ABCIXIMAB [Concomitant]
     Route: 042
  14. ASPIRIN [Concomitant]
     Indication: ANGIOPLASTY
  15. ASPIRIN [Concomitant]
  16. ASPIRIN [Concomitant]
  17. ASPIRIN [Concomitant]

REACTIONS (4)
  - ACUTE MYOCARDIAL INFARCTION [None]
  - DRUG INTERACTION [None]
  - DRUG RESISTANCE [None]
  - THROMBOSIS IN DEVICE [None]
